FAERS Safety Report 10343947 (Version 1)
Quarter: 2014Q3

REPORT INFORMATION
  Report Type: Spontaneous
  Country: US (occurrence: None)
  Receive Date: 20140724
  Receipt Date: 20140724
  Transmission Date: 20150326
  Serious: Yes (Disabling, Other)
  Sender: FDA-Public Use
  Company Number: None

PATIENT
  Age: 42 Year
  Sex: Female
  Weight: 68.04 kg

DRUGS (1)
  1. CLOMID [Suspect]
     Active Substance: CLOMIPHENE CITRATE
     Indication: INFERTILITY FEMALE
     Dosage: MOUTH
     Route: 048
     Dates: start: 1990, end: 199101

REACTIONS (3)
  - Visual impairment [None]
  - Visual field tests abnormal [None]
  - Headache [None]

NARRATIVE: CASE EVENT DATE: 1990
